FAERS Safety Report 8831545 (Version 1)
Quarter: 2012Q4

REPORT INFORMATION
  Report Type: 
  Country: US (occurrence: US)
  Receive Date: 20121009
  Receipt Date: 20121009
  Transmission Date: 20130627
  Serious: Yes (Life-Threatening, Hospitalization, Disabling, Other)
  Sender: FDA-Public Use
  Company Number: US-GLAXOSMITHKLINE-A0968606A

PATIENT
  Age: 51 Year
  Sex: Female

DRUGS (3)
  1. BENLYSTA [Suspect]
     Indication: SYSTEMIC LUPUS ERYTHEMATOSUS
     Dosage: 10MGK Cyclic
     Route: 042
     Dates: start: 20110915, end: 20111215
  2. PREDNISONE [Concomitant]
  3. IMURAN [Concomitant]

REACTIONS (10)
  - Escherichia sepsis [Recovered/Resolved]
  - Blood potassium decreased [Recovered/Resolved]
  - Aphagia [Unknown]
  - Diarrhoea [Unknown]
  - Vomiting [Recovered/Resolved]
  - Insomnia [Recovered/Resolved]
  - Nausea [Recovered/Resolved]
  - Increased appetite [Recovered/Resolved]
  - Oropharyngeal pain [Recovered/Resolved]
  - Agitation [Recovered/Resolved]
